FAERS Safety Report 6437235-2 (Version None)
Quarter: 2009Q4

REPORT INFORMATION
  Report Type: 
  Country: None (occurrence: None)
  Receive Date: 20091112
  Receipt Date: 20091102
  Transmission Date: 20100525
  Serious: Yes (Other)
  Sender: FDA-Public Use
  Company Number: CA-ROCHE-665883

PATIENT
  Sex: Male

DRUGS (3)
  1. TAMIFLU [Suspect]
     Indication: INFLUENZA
     Route: 048
  2. TYLENOL [Concomitant]
     Dosage: DRUG: TYLENOL (DYE FREE)
  3. ADVIL [Concomitant]
     Dosage: DRUG: ADVIL (DYE FREE)

REACTIONS (1)
  - HEAD TITUBATION [None]
